FAERS Safety Report 7906515-3 (Version None)
Quarter: 2011Q4

REPORT INFORMATION
  Report Type: 
  Country: None (occurrence: None)
  Receive Date: 20111110
  Receipt Date: 20111028
  Transmission Date: 20120403
  Serious: Yes (Life-Threatening, Hospitalization, Other)
  Sender: FDA-Public Use
  Company Number: US-ELI_LILLY_AND_COMPANY-US201006004209

PATIENT
  Sex: Female

DRUGS (24)
  1. GEMFIBROZIL [Concomitant]
     Dosage: 600 MG, UNK
  2. AMBIEN [Concomitant]
     Dosage: 10 MG, EACH EVENING
  3. CENTRUM SILVER [Concomitant]
  4. FORTEO [Suspect]
     Indication: OSTEOPOROSIS
     Dosage: 20 UG, QD
     Route: 065
  5. FORTEO [Suspect]
     Dosage: 20 UG, QD
     Route: 065
  6. CELEBREX [Concomitant]
     Dosage: 200 MG, EACH EVENING
  7. RANEXA [Concomitant]
     Indication: CARDIAC DISORDER
     Dosage: 500 MG, QD
  8. METOLAZONE [Concomitant]
     Dosage: 5 MG, UNK
  9. PLAVIX [Concomitant]
     Dosage: UNK, UNKNOWN
  10. ATENOLOL [Concomitant]
     Dosage: 25 MG, UNK
  11. SERTRALINE HYDROCHLORIDE [Concomitant]
  12. FLEXERIL [Concomitant]
     Dosage: 10 MG, UNK
  13. LIPITOR [Concomitant]
     Dosage: 80 MG, EACH EVENING
  14. HYDROCODONE BITARTRATE [Concomitant]
  15. VITAMIN B-12 [Concomitant]
  16. FORTEO [Suspect]
     Dosage: 20 UG, QD
  17. PHENERGAN [Concomitant]
  18. ASCORBIC ACID [Concomitant]
  19. ASPIRIN [Concomitant]
     Dosage: 81 MG, UNK
  20. VITAMIN D [Concomitant]
  21. FUROSEMIDE [Concomitant]
     Dosage: 20 MG, UNK
  22. THYROXIN [Concomitant]
     Dosage: 25 MG, QD
  23. MIRAPEX [Concomitant]
  24. NITROGLYCERIN [Concomitant]
     Dosage: UNK, PRN

REACTIONS (26)
  - RASH [None]
  - PRURITUS [None]
  - INJECTION SITE HAEMATOMA [None]
  - SLEEP DISORDER [None]
  - FEAR [None]
  - RESPIRATORY ARREST [None]
  - ALTERED STATE OF CONSCIOUSNESS [None]
  - BLOOD GLUCOSE DECREASED [None]
  - POOR QUALITY SLEEP [None]
  - OEDEMA PERIPHERAL [None]
  - DEPRESSED MOOD [None]
  - PARKINSON'S DISEASE [None]
  - TREMOR [None]
  - ANAEMIA [None]
  - OEDEMA [None]
  - WOUND DRAINAGE [None]
  - CHEST PAIN [None]
  - DIABETES MELLITUS [None]
  - FOAMING AT MOUTH [None]
  - DYSPNOEA [None]
  - ANXIETY [None]
  - MALAISE [None]
  - LIMB DISCOMFORT [None]
  - CARDIAC DISORDER [None]
  - OXYGEN SATURATION DECREASED [None]
  - INTENTIONAL DRUG MISUSE [None]
